FAERS Safety Report 4708446-9 (Version None)
Quarter: 2005Q3

REPORT INFORMATION
  Report Type: 
  Country: None (occurrence: None)
  Receive Date: 20050707
  Receipt Date: 20050627
  Transmission Date: 20060218
  Serious: Yes (Death, Hospitalization)
  Sender: FDA-Public Use
  Company Number: FR-BRISTOL-MYERS SQUIBB COMPANY-13017322

PATIENT
  Age: 36 Year
  Sex: Male

DRUGS (1)
  1. KENACORT [Suspect]
     Indication: HYPERSENSITIVITY
     Route: 030
     Dates: start: 20050623, end: 20050623

REACTIONS (2)
  - DEATH [None]
  - INJECTION SITE ABSCESS [None]
